FAERS Safety Report 10210192 (Version 1)
Quarter: 2014Q2

REPORT INFORMATION
  Report Type: Spontaneous
  Country: US (occurrence: US)
  Receive Date: 20140602
  Receipt Date: 20140602
  Transmission Date: 20141212
  Serious: Yes (Other)
  Sender: FDA-Public Use
  Company Number: US-BAYER-2014-076876

PATIENT
  Age: 84 Year
  Sex: Female
  Weight: 63.49 kg

DRUGS (2)
  1. ALEVE CAPLET [Suspect]
     Indication: HEADACHE
     Dosage: 2 DF, ONCE
     Route: 048
     Dates: start: 2013, end: 2013
  2. AMBIEN [Concomitant]
     Dosage: UNK

REACTIONS (5)
  - Drug hypersensitivity [Not Recovered/Not Resolved]
  - Dyspnoea [Not Recovered/Not Resolved]
  - Rash generalised [Not Recovered/Not Resolved]
  - Generalised erythema [Not Recovered/Not Resolved]
  - Urticaria [Not Recovered/Not Resolved]
